FAERS Safety Report 8181526-4 (Version None)
Quarter: 2012Q1

REPORT INFORMATION
  Report Type: 
  Country: None (occurrence: None)
  Receive Date: 20120302
  Receipt Date: 20120216
  Transmission Date: 20120608
  Serious: Yes (Death, Life-Threatening, Hospitalization)
  Sender: FDA-Public Use
  Company Number: JP-AMGEN-JPNCT2011057481

PATIENT
  Age: 73 Year
  Sex: Male
  Weight: 49 kg

DRUGS (34)
  1. WARFARIN SODIUM [Concomitant]
     Dosage: 1 MG, UNK
     Route: 048
     Dates: end: 20111016
  2. LYRICA [Concomitant]
     Dosage: 150 MG, QD
     Route: 048
     Dates: end: 20111016
  3. IRINOTECAN HCL [Suspect]
     Dosage: 180 MG, Q2WK
     Route: 041
     Dates: start: 20101004, end: 20101018
  4. ASPIRIN [Concomitant]
     Dosage: 100 MG, QD
     Route: 048
     Dates: end: 20111016
  5. PYDOXAL [Concomitant]
     Dosage: 30 MG, UNK
     Route: 048
     Dates: start: 20111011, end: 20111017
  6. FENTANYL CITRATE [Concomitant]
     Indication: BACK PAIN
     Dosage: 2 MG, QD
     Route: 062
     Dates: start: 20110929, end: 20111024
  7. GASMOTIN [Concomitant]
     Dosage: 15 MG, QD
     Route: 048
     Dates: start: 20110912, end: 20111017
  8. CADUET [Concomitant]
     Dosage: UNK
     Route: 048
     Dates: start: 20110912, end: 20111016
  9. FLUOROURACIL [Concomitant]
     Dosage: 483 MG, Q2WK
     Route: 040
     Dates: start: 20111004, end: 20111004
  10. BASEN [Concomitant]
     Dosage: 0.9 MG, UNK
     Route: 048
     Dates: end: 20111016
  11. ALOXI [Concomitant]
     Indication: PROPHYLAXIS
     Dosage: 0.75 MG, Q2WK
     Route: 042
     Dates: start: 20110916, end: 20111018
  12. PANITUMUMAB [Suspect]
     Indication: COLORECTAL CANCER
     Dosage: 336 MG, Q2WK
     Route: 041
     Dates: start: 20111004, end: 20111018
  13. FLUOROURACIL [Concomitant]
     Indication: COLORECTAL CANCER
     Dosage: 660 MG, Q2WK
     Route: 040
     Dates: start: 20110916, end: 20110916
  14. FLUOROURACIL [Concomitant]
     Dosage: 3960 MG, Q2WK
     Route: 041
     Dates: start: 20110916, end: 20110918
  15. MAGNESIUM SULFATE [Concomitant]
     Dosage: 750 MG, UNK
     Dates: end: 20111016
  16. LORAZEPAM [Concomitant]
     Dosage: 0.5 MG, QD
     Route: 048
     Dates: start: 20111011, end: 20111017
  17. MORPHINE [Concomitant]
     Dosage: 40 MG, UNK
     Route: 048
     Dates: start: 20111004, end: 20111024
  18. CARVEDILOL [Concomitant]
     Dosage: 2.5 MG, UNK
     Route: 048
     Dates: end: 20111016
  19. TAMSULOSIN HCL [Concomitant]
     Dosage: 0.2 MG, UNK
     Route: 048
     Dates: start: 20111018, end: 20111024
  20. PROCHLORPERAZINE [Concomitant]
     Dosage: 15 MG, UNK
     Route: 048
     Dates: start: 20110930, end: 20111007
  21. IRINOTECAN HCL [Suspect]
     Indication: COLORECTAL CANCER
     Dosage: 240 MG, Q2WK
     Route: 041
     Dates: start: 20110916, end: 20110916
  22. BASEN [Concomitant]
     Dosage: UNK
     Route: 048
     Dates: end: 20111016
  23. LEVOLEUCOVORIN CALCIUM [Concomitant]
     Indication: COLORECTAL CANCER
     Dosage: 325 MG, Q2WK
     Route: 041
     Dates: start: 20110916, end: 20110916
  24. LEVOLEUCOVORIN CALCIUM [Concomitant]
     Dosage: 322 MG, Q2WK
     Route: 041
     Dates: start: 20111004, end: 20111018
  25. GASCON [Concomitant]
     Dosage: 240 MG, UNK
     Dates: end: 20111016
  26. MAGNESIUM OXIDE [Concomitant]
     Dosage: 1000 MG, QD
     Dates: start: 20110929, end: 20111017
  27. ZOMETA [Concomitant]
     Indication: METASTASES TO BONE
     Dosage: 4 MG, Q2WK
     Route: 042
     Dates: start: 20110929, end: 20111020
  28. DECADRON [Concomitant]
     Indication: PROPHYLAXIS
     Dosage: 0.6 MG, Q2WK
     Route: 065
     Dates: start: 20110916, end: 20111018
  29. FLUOROURACIL [Concomitant]
     Dosage: 2900 MG, Q2WK
     Route: 041
     Dates: start: 20111004, end: 20111006
  30. FLUOROURACIL [Concomitant]
     Dosage: 380 MG, Q2WK
     Route: 040
     Dates: start: 20111018, end: 20111018
  31. FLUOROURACIL [Concomitant]
     Dosage: 2320 MG, Q2WK
     Route: 041
     Dates: start: 20111018, end: 20111020
  32. SIGMART [Concomitant]
     Dosage: 15 MG, UNK
     Route: 048
     Dates: end: 20111016
  33. YODEL [Concomitant]
     Dosage: UNK
     Route: 048
     Dates: end: 20111016
  34. HIRUDOID [Concomitant]
     Indication: PROPHYLAXIS
     Dosage: UNK
     Route: 062
     Dates: start: 20111004

REACTIONS (6)
  - TOXIC EPIDERMAL NECROLYSIS [None]
  - APHTHOUS STOMATITIS [None]
  - NEUTROPHIL COUNT DECREASED [None]
  - INTERSTITIAL LUNG DISEASE [None]
  - CHEILITIS [None]
  - NAUSEA [None]
